FAERS Safety Report 14352522 (Version 1)
Quarter: 2018Q1

REPORT INFORMATION
  Report Type: Report from Study
  Country: TW (occurrence: TW)
  Receive Date: 20180104
  Receipt Date: 20180104
  Transmission Date: 20180509
  Serious: Yes (Death, Other)
  Sender: FDA-Public Use
  Company Number: TW-ACTELION-A-NJ2018-165302

PATIENT
  Age: 62 Year
  Sex: Male

DRUGS (1)
  1. VENTAVIS [Suspect]
     Active Substance: ILOPROST
     Indication: PULMONARY ARTERIAL HYPERTENSION
     Dosage: UNK, TID
     Route: 055

REACTIONS (3)
  - Nasopharyngitis [Fatal]
  - Pulmonary arterial hypertension [Unknown]
  - Disease complication [Fatal]

NARRATIVE: CASE EVENT DATE: 20171229
